FAERS Safety Report 26038517 (Version 1)
Quarter: 2025Q4

REPORT INFORMATION
  Report Type: Spontaneous
  Country: US (occurrence: US)
  Receive Date: 20251113
  Receipt Date: 20251113
  Transmission Date: 20260117
  Serious: No
  Sender: GLAXOSMITHKLINE
  Company Number: US-GSK-US2025146314

PATIENT
  Sex: Female

DRUGS (1)
  1. IMITREX [Suspect]
     Active Substance: SUMATRIPTAN SUCCINATE
     Indication: Migraine
     Dosage: AS NEEDED

REACTIONS (4)
  - Complex regional pain syndrome [Unknown]
  - Back disorder [Unknown]
  - Memory impairment [Unknown]
  - Inappropriate schedule of product administration [Unknown]
